FAERS Safety Report 14413016 (Version 1)
Quarter: 2018Q1

REPORT INFORMATION
  Report Type: Spontaneous
  Country: US (occurrence: US)
  Receive Date: 20180119
  Receipt Date: 20180119
  Transmission Date: 20180509
  Serious: Yes (Other)
  Sender: FDA-Public Use
  Company Number: US-BAUSCH-BL-2018-001165

PATIENT
  Age: 43 Year
  Sex: Female
  Weight: 71.28 kg

DRUGS (4)
  1. MINOCIN [Suspect]
     Active Substance: MINOCYCLINE HYDROCHLORIDE
     Indication: SKIN DISORDER
  2. MINOCYCLINE HYDROCHLORIDE. [Suspect]
     Active Substance: MINOCYCLINE HYDROCHLORIDE
     Indication: ACNE
     Dosage: STARTED ABOUT 9 YEARS PRIOR
     Route: 065
  3. MINOCIN [Suspect]
     Active Substance: MINOCYCLINE HYDROCHLORIDE
     Indication: ACNE
     Dosage: 2 CAPSULES DAILY (STARTED ABOUT 9 YEARS PRIOR)
     Route: 048
  4. MINOCYCLINE HYDROCHLORIDE. [Suspect]
     Active Substance: MINOCYCLINE HYDROCHLORIDE
     Indication: SKIN DISORDER

REACTIONS (3)
  - Photophobia [Not Recovered/Not Resolved]
  - Surgery [Unknown]
  - Vision blurred [Not Recovered/Not Resolved]

NARRATIVE: CASE EVENT DATE: 201707
